FAERS Safety Report 7420971-9 (Version None)
Quarter: 2011Q2

REPORT INFORMATION
  Report Type: 
  Country: None (occurrence: None)
  Receive Date: 20110418
  Receipt Date: 20110411
  Transmission Date: 20111010
  Serious: Yes (Death, Other)
  Sender: FDA-Public Use
  Company Number: JP-ROCHE-771249

PATIENT
  Sex: Male

DRUGS (4)
  1. AVASTIN [Suspect]
     Indication: LARGE INTESTINE CARCINOMA
     Dosage: FREQUENCY: 1/2 WEEKS
     Route: 041
  2. FLUOROURACIL [Concomitant]
     Dosage: INTRAVENOUS BOLUS FOLLOWED BY INTRAVENOUS DRIP.
     Route: 042
  3. IRINOTECAN HYDROCHLORIDE [Suspect]
     Indication: LARGE INTESTINE CARCINOMA
     Route: 041
  4. LEVOFOLINATE [Concomitant]
     Route: 041

REACTIONS (2)
  - THROMBOTIC THROMBOCYTOPENIC PURPURA [None]
  - DIARRHOEA [None]
